FAERS Safety Report 17847703 (Version 1)
Quarter: 2020Q2

REPORT INFORMATION
  Report Type: Spontaneous
  Country: CN (occurrence: CN)
  Receive Date: 20200601
  Receipt Date: 20200601
  Transmission Date: 20200714
  Serious: Yes (Other)
  Sender: FDA-Public Use
  Company Number: CN-BRACCO-2020CN02173

PATIENT
  Age: 37 Year
  Sex: Female

DRUGS (2)
  1. NORMAL SALINE [Concomitant]
     Active Substance: SODIUM CHLORIDE
     Dosage: 5 ML
     Route: 040
     Dates: start: 20200528
  2. SONOVUE [Suspect]
     Active Substance: SULFUR HEXAFLUORIDE
     Indication: ARTERIOGRAM RENAL
     Dosage: 1 ML, SINGLE
     Route: 042
     Dates: start: 20200528, end: 20200528

REACTIONS (5)
  - Peripheral coldness [Recovered/Resolved]
  - Blood pressure systolic increased [Recovered/Resolved]
  - Altered state of consciousness [Recovered/Resolved]
  - Off label use [Recovered/Resolved]
  - Confusional state [Recovered/Resolved]

NARRATIVE: CASE EVENT DATE: 20200528
